FAERS Safety Report 7967378-3 (Version None)
Quarter: 2011Q4

REPORT INFORMATION
  Report Type: 
  Country: None (occurrence: None)
  Receive Date: 20111206
  Receipt Date: 20111121
  Transmission Date: 20120403
  Serious: Yes (Hospitalization, Other)
  Sender: FDA-Public Use
  Company Number: HA11-308-AE

PATIENT
  Age: 36 Year
  Sex: Male
  Weight: 81.6475 kg

DRUGS (6)
  1. LORAZEPAM [Concomitant]
  2. ZOLPIDEM [Concomitant]
  3. TRAMADOL HCL [Suspect]
     Indication: PAIN
     Dosage: 1 TABLET, Q4H, PRN, ORAL ; 1-2 TABS, Q4H, PRN, ORAL
     Route: 048
     Dates: start: 20111101
  4. OXY / APAP [Concomitant]
  5. LISINOPRIL [Concomitant]
  6. CYCLOBENZAPRINE [Concomitant]

REACTIONS (8)
  - AMNESIA [None]
  - SPINAL FRACTURE [None]
  - DRUG ABUSE [None]
  - CONVULSION [None]
  - DRUG WITHDRAWAL SYNDROME [None]
  - ROAD TRAFFIC ACCIDENT [None]
  - ANXIETY [None]
  - AGITATION [None]
